FAERS Safety Report 6555639-4 (Version None)
Quarter: 2010Q1

REPORT INFORMATION
  Report Type: 
  Country: None (occurrence: None)
  Receive Date: 20100128
  Receipt Date: 20100114
  Transmission Date: 20100710
  Serious: Yes (Other)
  Sender: FDA-Public Use
  Company Number: PHEH2010US00765

PATIENT
  Sex: Female

DRUGS (2)
  1. COMBIPATCH [Suspect]
     Indication: HORMONE REPLACEMENT THERAPY
     Dosage: UNK
  2. COMBIPATCH [Suspect]
     Dosage: 150 MG

REACTIONS (5)
  - APPLICATION SITE ERYTHEMA [None]
  - APPLICATION SITE EXFOLIATION [None]
  - APPLICATION SITE VESICLES [None]
  - MENSTRUATION IRREGULAR [None]
  - SKIN ULCER [None]
